FAERS Safety Report 17240935 (Version 3)
Quarter: 2020Q2

REPORT INFORMATION
  Report Type: Spontaneous
  Country: DK (occurrence: DK)
  Receive Date: 20200107
  Receipt Date: 20200423
  Transmission Date: 20200713
  Serious: Yes (Hospitalization, Disabling, Other)
  Sender: FDA-Public Use
  Company Number: DK-AUROBINDO-AUR-APL-2020-000735

PATIENT
  Age: 51 Year
  Sex: Female

DRUGS (2)
  1. SUMATRIPTAN AUROBINDO TABLETS 50 MG [Suspect]
     Active Substance: SUMATRIPTAN
     Indication: MIGRAINE
     Dosage: 50 MILLIGRAM, AS NECESSARY,DOSIS: 50 MG PN.STYRKE: 50 MG.
     Route: 048
     Dates: end: 20191001
  2. VIVELLE-DOT [Suspect]
     Active Substance: ESTRADIOL
     Indication: OESTROGEN THERAPY
     Dosage: 50 MILLIGRAM, DAILY,DOSIS: 50 MG/24 H.
     Route: 003
     Dates: start: 20190118, end: 20191007

REACTIONS (4)
  - Ischaemic cerebral infarction [Not Recovered/Not Resolved]
  - Aphasia [Not Recovered/Not Resolved]
  - Seizure [Unknown]
  - Hemiparesis [Not Recovered/Not Resolved]

NARRATIVE: CASE EVENT DATE: 20190928
